FAERS Safety Report 20874828 (Version 6)
Quarter: 2023Q2

REPORT INFORMATION
  Report Type: Other
  Country: CA (occurrence: CA)
  Receive Date: 20220526
  Receipt Date: 20230522
  Transmission Date: 20230722
  Serious: No
  Sender: FDA-Public Use
  Company Number: CA-TOLMAR, INC.-22CA034402

PATIENT
  Age: 74 Year
  Sex: Male

DRUGS (7)
  1. ELIGARD [Suspect]
     Active Substance: LEUPROLIDE ACETATE
     Indication: Prostate cancer
     Dosage: 7.5 MILLIGRAM, Q 1 MONTH
     Route: 058
     Dates: start: 20220502
  2. ELIGARD [Suspect]
     Active Substance: LEUPROLIDE ACETATE
     Indication: Prostate cancer
     Dosage: 22.5 MILLIGRAM, Q 3 MONTH
     Route: 058
     Dates: start: 20220530
  3. ELIGARD [Suspect]
     Active Substance: LEUPROLIDE ACETATE
     Dosage: 22.5 MILLIGRAM, Q 3 MONTH
     Route: 058
     Dates: start: 20220820
  4. ELIGARD [Suspect]
     Active Substance: LEUPROLIDE ACETATE
     Dosage: 22.5 MILLIGRAM, Q 3 MONTH
     Route: 058
     Dates: start: 20221114
  5. ELIGARD [Suspect]
     Active Substance: LEUPROLIDE ACETATE
     Dosage: 22.5 MILLIGRAM, Q 3 MONTH
     Route: 058
     Dates: start: 20230206
  6. ELIGARD [Suspect]
     Active Substance: LEUPROLIDE ACETATE
     Dosage: 22.5 MILLIGRAM, Q 3 MONTH
     Route: 058
     Dates: start: 20230501
  7. RADIATION THERAPY [Suspect]
     Active Substance: RADIATION THERAPY
     Indication: Product used for unknown indication
     Dosage: UNK

REACTIONS (16)
  - Pain in extremity [Not Recovered/Not Resolved]
  - Arthritis [Not Recovered/Not Resolved]
  - Chills [Not Recovered/Not Resolved]
  - Peripheral swelling [Unknown]
  - Limb discomfort [Unknown]
  - Anaemia [Not Recovered/Not Resolved]
  - Urinary incontinence [Not Recovered/Not Resolved]
  - Micturition urgency [Not Recovered/Not Resolved]
  - Dizziness [Unknown]
  - Insomnia [Unknown]
  - Injection site mass [Not Recovered/Not Resolved]
  - Injection site pain [Recovered/Resolved]
  - Constipation [Not Recovered/Not Resolved]
  - Arthralgia [Not Recovered/Not Resolved]
  - Fatigue [Not Recovered/Not Resolved]
  - Hot flush [Not Recovered/Not Resolved]

NARRATIVE: CASE EVENT DATE: 20220401
